FAERS Safety Report 12161066 (Version 1)
Quarter: 2016Q1

REPORT INFORMATION
  Report Type: Spontaneous
  Country: US (occurrence: US)
  Receive Date: 20160308
  Receipt Date: 20160308
  Transmission Date: 20160526
  Serious: Yes (Other)
  Sender: FDA-Public Use
  Company Number: US-ALEXION PHARMACEUTICALS INC-A201601438

PATIENT
  Sex: Female

DRUGS (1)
  1. SOLIRIS [Suspect]
     Active Substance: ECULIZUMAB
     Indication: PAROXYSMAL NOCTURNAL HAEMOGLOBINURIA
     Route: 042

REACTIONS (7)
  - Serum ferritin increased [Unknown]
  - Dyspnoea [Unknown]
  - Feeling abnormal [Unknown]
  - Blood bilirubin abnormal [Unknown]
  - Haemoglobin decreased [Unknown]
  - White blood cell count abnormal [Not Recovered/Not Resolved]
  - Chromaturia [Unknown]
